FAERS Safety Report 8455501-6 (Version None)
Quarter: 2012Q2

REPORT INFORMATION
  Report Type: 
  Country: None (occurrence: None)
  Receive Date: 20120613
  Receipt Date: 20120604
  Transmission Date: 20120825
  Serious: Yes (Hospitalization)
  Sender: FDA-Public Use
  Company Number: 2012SP030088

PATIENT
  Age: 59 Year
  Sex: Male
  Weight: 60 kg

DRUGS (10)
  1. REBETOL [Suspect]
     Indication: HEPATITIS C
     Dosage: 600 MG;QD;PO 400 MG;QD;PO 200 MG;QD;PO
     Route: 048
     Dates: start: 20120321, end: 20120327
  2. REBETOL [Suspect]
     Indication: HEPATITIS C
     Dosage: 600 MG;QD;PO 400 MG;QD;PO 200 MG;QD;PO
     Route: 048
     Dates: start: 20120222, end: 20120320
  3. REBETOL [Suspect]
     Indication: HEPATITIS C
     Dosage: 600 MG;QD;PO 400 MG;QD;PO 200 MG;QD;PO
     Route: 048
     Dates: start: 20120427
  4. REBETOL [Suspect]
     Indication: HEPATITIS C
     Dosage: 600 MG;QD;PO 400 MG;QD;PO 200 MG;QD;PO
     Route: 048
     Dates: start: 20120328, end: 20120417
  5. TELAVIC (ANTIVIRALS NOS) [Suspect]
     Indication: HEPATITIS C
     Dosage: 2250 MG;QD;PO 1500 MG;QD;PO
     Route: 048
     Dates: start: 20120222, end: 20120320
  6. TELAVIC (ANTIVIRALS NOS) [Suspect]
     Indication: HEPATITIS C
     Dosage: 2250 MG;QD;PO 1500 MG;QD;PO
     Route: 048
     Dates: start: 20120321, end: 20120417
  7. PEG-INTRON [Suspect]
     Indication: HEPATITIS C
     Dosage: 80 MCG;QW;SC 50 MCG;QW;SC 60 MCG;QW;SC
     Route: 058
     Dates: start: 20120516
  8. PEG-INTRON [Suspect]
     Indication: HEPATITIS C
     Dosage: 80 MCG;QW;SC 50 MCG;QW;SC 60 MCG;QW;SC
     Route: 058
     Dates: start: 20120222, end: 20120417
  9. PEG-INTRON [Suspect]
     Indication: HEPATITIS C
     Dosage: 80 MCG;QW;SC 50 MCG;QW;SC 60 MCG;QW;SC
     Route: 058
     Dates: start: 20120427, end: 20120515
  10. ALLOPURINOL [Concomitant]

REACTIONS (6)
  - PYREXIA [None]
  - PRURITUS [None]
  - HAEMOGLOBIN DECREASED [None]
  - ERYTHEMA [None]
  - ERYTHEMA MULTIFORME [None]
  - BLOOD URIC ACID INCREASED [None]
